FAERS Safety Report 8240280-8 (Version None)
Quarter: 2012Q1

REPORT INFORMATION
  Report Type: 
  Country: None (occurrence: None)
  Receive Date: 20120328
  Receipt Date: 20120328
  Transmission Date: 20120608
  Serious: Yes (Life-Threatening, Hospitalization)
  Sender: FDA-Public Use
  Company Number: None

PATIENT
  Age: 65 Year
  Sex: Female
  Weight: 88.45 kg

DRUGS (2)
  1. ENOXAPARIN [Suspect]
     Indication: PULMONARY EMBOLISM
     Dosage: 90MG
     Route: 058
     Dates: start: 20120119, end: 20120123
  2. WARFARIN SODIUM [Concomitant]
     Indication: PULMONARY EMBOLISM
     Dosage: 2.5 - 4MG
     Route: 048
     Dates: start: 20120120, end: 20120122

REACTIONS (3)
  - INTRA-ABDOMINAL HAEMATOMA [None]
  - PELVIC HAEMATOMA [None]
  - HAEMOGLOBIN DECREASED [None]
